FAERS Safety Report 18775702 (Version 2)
Quarter: 2021Q1

REPORT INFORMATION
  Report Type: Spontaneous
  Country: JP (occurrence: JP)
  Receive Date: 20210122
  Receipt Date: 20210222
  Transmission Date: 20210419
  Serious: Yes (Hospitalization)
  Sender: FDA-Public Use
  Company Number: JP-MYLANLABS-2021M1003346

PATIENT
  Age: 55 Year
  Sex: Female
  Weight: 33.8 kg

DRUGS (6)
  1. GRANISETRON [Concomitant]
     Active Substance: GRANISETRON
     Indication: PROPHYLAXIS OF NAUSEA AND VOMITING
     Dosage: 3MG, 3?WEEK CYCLE DOSING REGIMEN
     Route: 042
     Dates: start: 20200512, end: 20200902
  2. PACLITAXEL. [Suspect]
     Active Substance: PACLITAXEL
     Indication: UTERINE CANCER
     Dosage: 217MG, 3?WEEK CYCLE DOSING REGIMEN
     Route: 042
     Dates: start: 20200512, end: 20200902
  3. CARBOPLATIN INJ. 50MG ^NK^ [Suspect]
     Active Substance: CARBOPLATIN
     Indication: UTERINE CANCER
     Dosage: 497MG, 3?WEEK CYCLE DOSING REGIMEN
     Route: 041
     Dates: start: 20200512, end: 20200902
  4. FAMOTIDINE NICHIIKO [Concomitant]
     Indication: PROPHYLAXIS OF NAUSEA AND VOMITING
     Dosage: 20MG, 3?WEEK CYCLE DOSING REGIMEN
     Route: 042
     Dates: start: 20200512, end: 20200902
  5. DIPHENHYDRAMINE HYDROCHLORIDE. [Concomitant]
     Active Substance: DIPHENHYDRAMINE HYDROCHLORIDE
     Indication: PROPHYLAXIS OF NAUSEA AND VOMITING
     Dosage: 50MG, 3?WEEK CYCLE DOSING REGIMEN
     Route: 042
     Dates: start: 20200512, end: 20200902
  6. DEXART [Concomitant]
     Active Substance: DEXAMETHASONE SODIUM PHOSPHATE
     Indication: PROPHYLAXIS OF NAUSEA AND VOMITING
     Dosage: 6.6MG, 3?WEEK CYCLE DOSING REGIMEN
     Route: 042
     Dates: start: 20200512, end: 20200902

REACTIONS (1)
  - Ileus [Recovered/Resolved]

NARRATIVE: CASE EVENT DATE: 20200526
